FAERS Safety Report 4668799-7 (Version None)
Quarter: 2005Q2

REPORT INFORMATION
  Report Type: 
  Country: None (occurrence: None)
  Receive Date: 20050519
  Receipt Date: 20050504
  Transmission Date: 20051028
  Serious: Yes (Hospitalization, Other)
  Sender: FDA-Public Use
  Company Number: A-CH2004-08361

PATIENT
  Age: 17 Year
  Sex: Female
  Weight: 48.5 kg

DRUGS (6)
  1. ZEVESCA (MIGLUSTAT) CAPSULE [Suspect]
     Indication: GAUCHER'S DISEASE
     Dosage: SEE IMAGE
     Route: 048
     Dates: start: 20040419, end: 20040501
  2. ZEVESCA (MIGLUSTAT) CAPSULE [Suspect]
     Indication: GAUCHER'S DISEASE
     Dosage: SEE IMAGE
     Route: 048
     Dates: start: 20040501
  3. LAMICTAL [Concomitant]
  4. TOPIRAMATE [Concomitant]
  5. CLONAZEPAM [Concomitant]
  6. KEPPRA [Concomitant]

REACTIONS (5)
  - CHRONIC INFLAMMATORY DEMYELINATING POLYRADICULONEUROPATHY [None]
  - CONDITION AGGRAVATED [None]
  - DEMYELINATING POLYNEUROPATHY [None]
  - EPILEPSY [None]
  - GUILLAIN-BARRE SYNDROME [None]
